FAERS Safety Report 16428907 (Version 1)
Quarter: 2019Q2

REPORT INFORMATION
  Report Type: Spontaneous
  Country: DE (occurrence: DE)
  Receive Date: 20190613
  Receipt Date: 20190613
  Transmission Date: 20190711
  Serious: Yes (Other)
  Sender: FDA-Public Use
  Company Number: DE-ASTRAZENECA-2019SE86663

PATIENT
  Age: 56 Year
  Sex: Female

DRUGS (5)
  1. TAGRISSO [Suspect]
     Active Substance: OSIMERTINIB
     Dosage: ONE HOUR AFTER MEAL
     Route: 048
     Dates: start: 201709
  2. MORPHIN [Concomitant]
     Active Substance: MORPHINE
     Dates: start: 201701
  3. PANTOZOL [Concomitant]
     Active Substance: PANTOPRAZOLE SODIUM
     Dosage: ONE TIME DAILY IN THE EVENING
     Dates: start: 201701
  4. NOVALGIN [Concomitant]
  5. PANTOZOL [Concomitant]
     Active Substance: PANTOPRAZOLE SODIUM
     Dosage: TWO TIMES A DAY

REACTIONS (5)
  - Abdominal pain upper [Unknown]
  - Vomiting [Unknown]
  - Flatulence [Unknown]
  - Herpes zoster [Unknown]
  - Nausea [Unknown]
